FAERS Safety Report 5606138-5 (Version None)
Quarter: 2008Q1

REPORT INFORMATION
  Report Type: 
  Country: None (occurrence: None)
  Receive Date: 20080125
  Receipt Date: 20080125
  Transmission Date: 20080703
  Serious: No
  Sender: FDA-Public Use
  Company Number: None

PATIENT

DRUGS (1)
  1. NORMAL SALINE FLUSH 10ML IN 10ML SYRINGE EXCELSIOR MEDICAL, NEPTUNE NJ [Suspect]
     Indication: INTRAVENOUS CATHETER MANAGEMENT
     Dosage: 10ML IN 10ML SYRINGE VARIABLE IV
     Route: 042

REACTIONS (2)
  - MEDICATION ERROR [None]
  - PHARMACEUTICAL PRODUCT COMPLAINT [None]
